FAERS Safety Report 9364611 (Version 2)
Quarter: 2013Q3

REPORT INFORMATION
  Report Type: Report from Study
  Country: US (occurrence: US)
  Receive Date: 20130624
  Receipt Date: 20130801
  Transmission Date: 20140515
  Serious: Yes (Hospitalization)
  Sender: FDA-Public Use
  Company Number: US-ACTELION-A-US2013-84721

PATIENT
  Age: 66 Year
  Sex: Female

DRUGS (13)
  1. TRACLEER [Suspect]
     Indication: PULMONARY ARTERIAL HYPERTENSION
     Dosage: 62.5 MG, BID
     Route: 048
  2. COMBIVENT [Concomitant]
  3. AMIODARONE [Concomitant]
  4. ASPIRIN [Concomitant]
  5. CARVEDILOL [Concomitant]
  6. FUROSEMIDE [Concomitant]
  7. LEVOTHYROXINE [Concomitant]
  8. LOSARTAN [Concomitant]
  9. OMEPRAZOLE [Concomitant]
     Dosage: 62.5
     Route: 048
  10. PRAVASTATIN [Concomitant]
  11. PREDNISONE [Concomitant]
  12. VITAMIN B6 [Concomitant]
  13. COUMADIN [Concomitant]

REACTIONS (11)
  - Gastrointestinal infection [Recovered/Resolved]
  - Colitis ischaemic [Recovered/Resolved]
  - Diverticulum [Recovered/Resolved]
  - Polyp [Recovered/Resolved]
  - Coagulopathy [Recovered/Resolved]
  - International normalised ratio increased [Recovered/Resolved]
  - Diarrhoea [Recovered/Resolved]
  - Pneumonia [Recovered/Resolved]
  - Cardiac failure congestive [Recovered/Resolved]
  - Dyspnoea [Recovered/Resolved]
  - Constipation [Unknown]
